FAERS Safety Report 19294953 (Version 3)
Quarter: 2021Q3

REPORT INFORMATION
  Report Type: Spontaneous
  Country: HU (occurrence: HU)
  Receive Date: 20210524
  Receipt Date: 20210818
  Transmission Date: 20211014
  Serious: Yes (Life-Threatening, Hospitalization, Other)
  Sender: FDA-Public Use
  Company Number: NVSC2021HU064386

PATIENT
  Age: 1 Year
  Sex: Male
  Weight: 8.1 kg

DRUGS (18)
  1. VIGANTOL [Concomitant]
     Indication: PRODUCT USED FOR UNKNOWN INDICATION
     Dosage: UNK (BEFORE GENE THERAPY STARTED)
     Route: 065
  2. METHYLPREDNISOLONE. [Concomitant]
     Active Substance: METHYLPREDNISOLONE
     Dosage: 15 MG, QD (1X15MG/BODYWEIGHT/DAY)
     Route: 042
     Dates: start: 20210417
  3. NUSINERSEN [Concomitant]
     Active Substance: NUSINERSEN
     Indication: SPINAL MUSCULAR ATROPHY
     Dosage: UNK
     Route: 037
     Dates: start: 202004
  4. ZOLGENSMA [Suspect]
     Active Substance: ONASEMNOGENE ABEPARVOVEC-XIOI
     Indication: SPINAL MUSCULAR ATROPHY
     Dosage: UNK, ONCE/SINGLE (5X8.3ML +1X5.5 ML))
     Route: 042
     Dates: start: 20210312, end: 20210312
  5. FAMOTIDINE. [Suspect]
     Active Substance: FAMOTIDINE
     Dosage: UNK UNK, QD (2X4MG/KG)
     Route: 065
     Dates: start: 20210311
  6. PREDNISOLONE. [Concomitant]
     Active Substance: PREDNISOLONE
     Dosage: 5 MG, QD (1X/DAY)
     Route: 054
     Dates: start: 20210521
  7. FAMOTIDINE. [Suspect]
     Active Substance: FAMOTIDINE
     Dosage: 0.5 MG/KG, BID
     Route: 054
  8. PREDNISOLONE. [Concomitant]
     Active Substance: PREDNISOLONE
     Indication: PRODUCT USED FOR UNKNOWN INDICATION
     Dosage: 1 MG/KG, QD
     Route: 054
  9. PREDNISOLONE. [Concomitant]
     Active Substance: PREDNISOLONE
     Dosage: 8 MG, QD (1X8 MG)
     Route: 054
     Dates: start: 20210311, end: 20210415
  10. PREDNISOLONE. [Concomitant]
     Active Substance: PREDNISOLONE
     Dosage: 40 MG, QD (1X40MG/DAY)
     Route: 054
     Dates: start: 20210430, end: 20210506
  11. PREDNISOLONE. [Concomitant]
     Active Substance: PREDNISOLONE
     Dosage: 16 MG, QD (1X16MG/DAY)
     Route: 054
     Dates: start: 20210507, end: 20210514
  12. PREDNISOLONE. [Concomitant]
     Active Substance: PREDNISOLONE
     Dosage: 10 MG, QD (1X/DAY)
     Route: 054
     Dates: start: 20210514, end: 20210521
  13. METHYLPREDNISOLONE. [Concomitant]
     Active Substance: METHYLPREDNISOLONE
     Indication: PRODUCT USED FOR UNKNOWN INDICATION
     Dosage: 20 MG/KG, QD (1X20MG/BODYWEIGHT/DAY)
     Route: 042
     Dates: start: 20210416
  14. FAMOTIDINE. [Suspect]
     Active Substance: FAMOTIDINE
     Indication: PROPHYLAXIS
     Dosage: 0.5 MG/KG
     Route: 065
  15. PREDNISOLONE. [Concomitant]
     Active Substance: PREDNISOLONE
     Dosage: 10 MG/KG, QD (1X10 MG/ BODYWEIGHT/DAY)
     Route: 054
     Dates: start: 20210420, end: 20210429
  16. METHYLPREDNISOLONE. [Concomitant]
     Active Substance: METHYLPREDNISOLONE
     Dosage: 15 MG, QD (1X15MG/BODYWEIGHT/DAY)
     Route: 042
     Dates: start: 20210418
  17. METHYLPREDNISOLONE. [Concomitant]
     Active Substance: METHYLPREDNISOLONE
     Dosage: 15 MG, QD (1X15MG/BODYWEIGHT/DAY)
     Route: 042
     Dates: start: 20210419
  18. VIGANTOL [Concomitant]
     Dosage: 2 DRP, QD
     Route: 048

REACTIONS (34)
  - Vomiting [Recovered/Resolved]
  - Discomfort [Unknown]
  - Mean cell haemoglobin decreased [Recovered/Resolved]
  - Blood creatinine decreased [Recovering/Resolving]
  - Faeces pale [Unknown]
  - Renal cyst [Unknown]
  - Pyrexia [Recovered/Resolved]
  - Bacterial test positive [Unknown]
  - Nausea [Unknown]
  - Aspartate aminotransferase increased [Unknown]
  - Decreased appetite [Not Recovered/Not Resolved]
  - Fluid intake reduced [Recovered/Resolved]
  - Alanine aminotransferase increased [Recovered/Resolved]
  - Crystal urine present [Unknown]
  - White blood cells urine positive [Unknown]
  - Decreased immune responsiveness [Unknown]
  - Eosinophil count increased [Unknown]
  - Bilirubin conjugated increased [Recovering/Resolving]
  - Monocyte count increased [Not Recovered/Not Resolved]
  - Eosinophil count increased [Recovered/Resolved]
  - Blood creatine phosphokinase increased [Recovered/Resolved]
  - Blood triglycerides increased [Unknown]
  - Troponin I increased [Recovered/Resolved]
  - Alanine aminotransferase increased [Unknown]
  - Blood bilirubin increased [Recovered/Resolved]
  - Blood lactate dehydrogenase increased [Recovering/Resolving]
  - Blood creatine phosphokinase MB increased [Recovered/Resolved]
  - Urine abnormality [Unknown]
  - Lipase increased [Recovered/Resolved]
  - Mean cell haemoglobin concentration decreased [Recovered/Resolved]
  - Urinary sediment present [Unknown]
  - Hepatomegaly [Unknown]
  - Gamma-glutamyltransferase increased [Recovering/Resolving]
  - Thrombocytopenia [Recovered/Resolved]

NARRATIVE: CASE EVENT DATE: 20210312
